FAERS Safety Report 17997680 (Version 1)
Quarter: 2020Q3

REPORT INFORMATION
  Report Type: Spontaneous
  Country: RU (occurrence: RU)
  Receive Date: 20200708
  Receipt Date: 20200708
  Transmission Date: 20201103
  Serious: Yes (Other)
  Sender: FDA-Public Use
  Company Number: RU-GLAXOSMITHKLINE-RU2020EME112064

PATIENT

DRUGS (2)
  1. AMOXICILLIN + CLAVULANIC ACID [Suspect]
     Active Substance: AMOXICILLIN\CLAVULANIC ACID
     Indication: RESPIRATORY TRACT INFECTION VIRAL
     Dosage: 625 MG, TID
     Route: 064
  2. ACICLOVIR [Suspect]
     Active Substance: ACYCLOVIR
     Indication: PARVOVIRUS B19 INFECTION
     Dosage: 500 MG, TID
     Route: 064

REACTIONS (3)
  - Foetal exposure during pregnancy [Unknown]
  - Foetal anaemia [Unknown]
  - Hydrops foetalis [Unknown]
